FAERS Safety Report 4573554-2 (Version None)
Quarter: 2005Q1

REPORT INFORMATION
  Report Type: 
  Country: None (occurrence: None)
  Receive Date: 20050208
  Receipt Date: 20040915
  Transmission Date: 20050727
  Serious: No
  Sender: FDA-Public Use
  Company Number: 2004MP000117

PATIENT
  Age: 44 Year
  Sex: Female

DRUGS (6)
  1. PAXIL [Suspect]
     Dosage: 20MG PER DAY
     Route: 048
  2. ALOXI [Suspect]
     Route: 042
     Dates: start: 20040730
  3. LORAZEPAM [Concomitant]
     Dosage: 1MG UNKNOWN
     Route: 065
  4. DOXORUBICIN HCL [Concomitant]
  5. CYCLOPHOSPHAMIDE [Concomitant]
  6. DEXAMETHASONE [Concomitant]

REACTIONS (1)
  - HEADACHE [None]
